FAERS Safety Report 17037420 (Version 3)
Quarter: 2022Q2

REPORT INFORMATION
  Report Type: Spontaneous
  Country: US (occurrence: US)
  Receive Date: 20191115
  Receipt Date: 20220516
  Transmission Date: 20220721
  Serious: No
  Sender: FDA-Public Use
  Company Number: US-PFIZER INC-2019491655

PATIENT
  Age: 80 Year
  Sex: Female

DRUGS (8)
  1. SEPTRA [Suspect]
     Active Substance: SULFAMETHOXAZOLE\TRIMETHOPRIM
     Dosage: UNK
  2. TRIMETHOBENZAMIDE HYDROCHLORIDE [Suspect]
     Active Substance: TRIMETHOBENZAMIDE HYDROCHLORIDE
     Dosage: UNK
  3. BACTRIM [Suspect]
     Active Substance: SULFAMETHOXAZOLE\TRIMETHOPRIM
     Dosage: UNK
  4. FLEXERIL [Suspect]
     Active Substance: CYCLOBENZAPRINE HYDROCHLORIDE
     Dosage: UNK
  5. PHENERGAN [Suspect]
     Active Substance: PROMETHAZINE HYDROCHLORIDE
     Dosage: UNK
  6. FLUOXETINE HYDROCHLORIDE [Suspect]
     Active Substance: FLUOXETINE HYDROCHLORIDE
     Dosage: UNK
  7. CHLORPHENIRAMINE\GUAIFENESIN\PSEUDOEPHEDRINE [Suspect]
     Active Substance: CHLORPHENIRAMINE\GUAIFENESIN\PSEUDOEPHEDRINE
  8. MEDICAL FOOD [Suspect]
     Active Substance: MEDICAL FOOD

REACTIONS (1)
  - Drug hypersensitivity [Unknown]
